FAERS Safety Report 4764484-1 (Version None)
Quarter: 2005Q3

REPORT INFORMATION
  Report Type: 
  Country: None (occurrence: None)
  Receive Date: 20050906
  Receipt Date: 20050822
  Transmission Date: 20060218
  Serious: Yes (Death, Other)
  Sender: FDA-Public Use
  Company Number: USA0508106027

PATIENT
  Age: 64 Year
  Sex: Female
  Weight: 63 kg

DRUGS (14)
  1. XIGRIS [Suspect]
     Indication: SEPSIS
     Dosage: 24 UG/KG/HR
     Dates: start: 20050817, end: 20050817
  2. NOREPINEPHRINE [Concomitant]
  3. VALSOPRESSIN INJECTION [Concomitant]
  4. ASPIRIN [Concomitant]
  5. SEVELAMER [Concomitant]
  6. CILASTATIN W/ IMIPENEM [Concomitant]
  7. ALLOPURINOL [Concomitant]
  8. LEVOFLOXACIN [Concomitant]
  9. HYDROCHLROTISONE [Concomitant]
  10. INSULIN [Concomitant]
  11. SODIUM BICARBOANTE [Concomitant]
  12. FENTANYL [Concomitant]
  13. LORAZEPAM [Concomitant]
  14. LINEZOLID [Concomitant]

REACTIONS (9)
  - ACTIVATED PARTIAL THROMBOPLASTIN TIME PROLONGED [None]
  - BLOOD PH DECREASED [None]
  - HAEMATOCRIT DECREASED [None]
  - HAEMOGLOBIN DECREASED [None]
  - INTERNATIONAL NORMALISED RATIO INCREASED [None]
  - OXYGEN SATURATION DECREASED [None]
  - PCO2 DECREASED [None]
  - PLATELET COUNT DECREASED [None]
  - SEPTIC SHOCK [None]
